FAERS Safety Report 6379854-8 (Version None)
Quarter: 2009Q3

REPORT INFORMATION
  Report Type: 
  Country: None (occurrence: None)
  Receive Date: 20090923
  Receipt Date: 20090908
  Transmission Date: 20100115
  Serious: Yes (Hospitalization)
  Sender: FDA-Public Use
  Company Number: GXKR2009JP10058

PATIENT
  Age: 36 Year
  Sex: Male

DRUGS (1)
  1. CYCLOSPORINE [Suspect]
     Indication: IMMUNOSUPPRESSION
     Dosage: 5 MG/KG, ORAL
     Route: 048

REACTIONS (2)
  - DRUG LEVEL INCREASED [None]
  - RHABDOMYOLYSIS [None]
